FAERS Safety Report 7204078-1 (Version None)
Quarter: 2010Q4

REPORT INFORMATION
  Report Type: 
  Country: None (occurrence: None)
  Receive Date: 20101230
  Receipt Date: 20101019
  Transmission Date: 20110411
  Serious: Yes (Hospitalization)
  Sender: FDA-Public Use
  Company Number: US-ASTRAZENECA-2009UW04893

PATIENT
  Age: 19052 Day
  Sex: Female
  Weight: 38.6 kg

DRUGS (3)
  1. NEXIUM [Suspect]
     Route: 048
     Dates: start: 20080220
  2. SUBUTEX [Concomitant]
     Dates: start: 20100401
  3. LEXAPRO [Concomitant]

REACTIONS (22)
  - ABDOMINAL PAIN UPPER [None]
  - ANXIETY [None]
  - ARTHRITIS [None]
  - BLOOD POTASSIUM DECREASED [None]
  - CHRONIC OBSTRUCTIVE PULMONARY DISEASE [None]
  - COUGH [None]
  - DEPRESSION [None]
  - DRUG DOSE OMISSION [None]
  - DYSPHAGIA [None]
  - DYSPNOEA [None]
  - EMPHYSEMA [None]
  - EYE OPERATION [None]
  - FIBROMYALGIA [None]
  - HOSPITALISATION [None]
  - INCREASED UPPER AIRWAY SECRETION [None]
  - MALAISE [None]
  - NASOPHARYNGITIS [None]
  - OSTEOARTHRITIS [None]
  - PAIN [None]
  - PANIC ATTACK [None]
  - SURGERY [None]
  - WEIGHT INCREASED [None]
